FAERS Safety Report 9352985 (Version 2)
Quarter: 2013Q2

REPORT INFORMATION
  Report Type: Report from Study
  Country: FI (occurrence: FI)
  Receive Date: 20130618
  Receipt Date: 20130624
  Transmission Date: 20140414
  Serious: Yes (Other)
  Sender: FDA-Public Use
  Company Number: PHHO2013FI007546

PATIENT
  Age: 46 Year
  Sex: Female

DRUGS (5)
  1. FTY [Suspect]
     Indication: MULTIPLE SCLEROSIS
     Dosage: 0.5 MG, QD (MORNING)
     Route: 048
     Dates: start: 20101108
  2. CARDACE [Concomitant]
     Indication: HYPERTENSION
     Dosage: 5 MG, IN MORNING
     Route: 048
     Dates: start: 20091103
  3. FEMILAR [Concomitant]
     Indication: CONTRACEPTION
     Dates: start: 20051015
  4. VITAMIN D [Concomitant]
     Indication: ROUTINE HEALTH MAINTENANCE
     Dosage: 50 UG, IN MORNING
     Route: 048
     Dates: start: 20130101
  5. MIRANAX [Concomitant]
     Indication: MIGRAINE
     Dates: start: 20041130

REACTIONS (1)
  - Basal cell carcinoma [Recovering/Resolving]
